FAERS Safety Report 25832017 (Version 1)
Quarter: 2025Q3

REPORT INFORMATION
  Report Type: Report from Study
  Country: CA (occurrence: CA)
  Receive Date: 20250922
  Receipt Date: 20250922
  Transmission Date: 20251021
  Serious: Yes (Other)
  Sender: TAKEDA
  Company Number: CA-TAKEDA-2025TUS082330

PATIENT
  Age: 33 Year
  Sex: Male

DRUGS (3)
  1. VEDOLIZUMAB [Suspect]
     Active Substance: VEDOLIZUMAB
     Indication: Colitis ulcerative
  2. PREDNISONE [Concomitant]
     Active Substance: PREDNISONE
  3. CITALOPRAM [Concomitant]
     Active Substance: CITALOPRAM
     Indication: Anxiety

REACTIONS (2)
  - Haematochezia [Unknown]
  - Dizziness [Unknown]

NARRATIVE: CASE EVENT DATE: 20250917
